FAERS Safety Report 10676306 (Version 2)
Quarter: 2015Q1

REPORT INFORMATION
  Report Type: Spontaneous
  Country: FR (occurrence: FR)
  Receive Date: 20141226
  Receipt Date: 20150203
  Transmission Date: 20150720
  Serious: Yes (Hospitalization, Other)
  Sender: FDA-Public Use
  Company Number: FR-AMGEN-FRASP2014100377

PATIENT
  Age: 74 Year
  Sex: Male
  Weight: 76 kg

DRUGS (3)
  1. CORTANCYL [Concomitant]
     Active Substance: PREDNISONE
     Indication: RHEUMATOID ARTHRITIS
     Dosage: 5 MG, DAILY
     Route: 048
  2. CODEINE [Concomitant]
     Active Substance: CODEINE
     Dosage: UNK
  3. ENBREL [Suspect]
     Active Substance: ETANERCEPT
     Indication: RHEUMATOID ARTHRITIS
     Dosage: 50 MG, WEEKLY
     Route: 058
     Dates: end: 201412

REACTIONS (2)
  - Cerebral ischaemia [Recovered/Resolved]
  - Lacunar infarction [Recovered/Resolved]

NARRATIVE: CASE EVENT DATE: 201212
